FAERS Safety Report 4808124-1 (Version None)
Quarter: 2005Q4

REPORT INFORMATION
  Report Type: 
  Country: None (occurrence: None)
  Receive Date: 20051021
  Receipt Date: 20051006
  Transmission Date: 20060501
  Serious: Yes (Death, Hospitalization, Other)
  Sender: FDA-Public Use
  Company Number: A-US2005-10620

PATIENT
  Age: 54 Year
  Sex: Male

DRUGS (7)
  1. TRACLEER [Suspect]
     Dosage: 125 MG, BID, ORAL; 62.5 MG
     Route: 048
     Dates: end: 20050716
  2. TRACLEER [Suspect]
     Dosage: 125 MG, BID, ORAL; 62.5 MG
     Route: 048
     Dates: start: 20030101
  3. ALLOPURINOL [Concomitant]
  4. OMEPRAZOLE [Concomitant]
  5. WARFARIN SODIUM [Concomitant]
  6. METOPROLOL SUCCINATE [Concomitant]
  7. FUROSEMIDE [Concomitant]

REACTIONS (8)
  - ALANINE AMINOTRANSFERASE INCREASED [None]
  - ASPARTATE AMINOTRANSFERASE INCREASED [None]
  - BLOOD BILIRUBIN INCREASED [None]
  - HYPERKALAEMIA [None]
  - HYPOKALAEMIA [None]
  - LIVER FUNCTION TEST ABNORMAL [None]
  - PULMONARY HYPERTENSION [None]
  - RIGHT VENTRICULAR FAILURE [None]
